FAERS Safety Report 6080787-5 (Version None)
Quarter: 2009Q1

REPORT INFORMATION
  Report Type: 
  Country: None (occurrence: None)
  Receive Date: 20090217
  Receipt Date: 20090205
  Transmission Date: 20090719
  Serious: Yes (Other)
  Sender: FDA-Public Use
  Company Number: US-ELI_LILLY_AND_COMPANY-US200902001305

PATIENT
  Sex: Male
  Weight: 95.238 kg

DRUGS (5)
  1. ZYPREXA [Suspect]
     Indication: SCHIZOAFFECTIVE DISORDER
     Dosage: 5 MG, DAILY (1/D)
     Dates: start: 20040101
  2. ZYPREXA [Suspect]
     Dosage: 10 MG, UNK
  3. ZYPREXA [Suspect]
     Dosage: 15 MG, UNK
  4. ZYPREXA [Suspect]
     Dosage: 30 MG, UNK
  5. CYMBALTA [Suspect]
     Indication: DEPRESSION
     Dosage: 60 MG, DAILY (1/D)
     Dates: start: 20040101

REACTIONS (6)
  - ABNORMAL BEHAVIOUR [None]
  - DIABETES MELLITUS [None]
  - DIABETIC COMA [None]
  - OVERDOSE [None]
  - PRESYNCOPE [None]
  - WEIGHT INCREASED [None]
